FAERS Safety Report 8903438 (Version 2)
Quarter: 2012Q4

REPORT INFORMATION
  Report Type: 
  Country: CH (occurrence: CH)
  Receive Date: 20121112
  Receipt Date: 20121126
  Transmission Date: 20130627
  Serious: Yes (Hospitalization)
  Sender: FDA-Public Use
  Company Number: CH-ROCHE-1153424

PATIENT
  Age: 73 Year
  Sex: Female

DRUGS (4)
  1. ZELBORAF [Suspect]
     Indication: METASTASES TO LIVER
     Route: 048
     Dates: start: 201202
  2. ZELBORAF [Suspect]
     Indication: METASTASES TO LYMPH NODES
     Dosage: restarted with half the dose
     Route: 065
     Dates: start: 201204
  3. ZELBORAF [Suspect]
     Indication: METASTATIC MALIGNANT MELANOMA
  4. BONVIVA [Concomitant]
     Route: 042

REACTIONS (6)
  - Sepsis [Recovered/Resolved]
  - Hemiparesis [Recovered/Resolved]
  - Fatigue [Unknown]
  - Asthenia [Unknown]
  - Dermal cyst [Unknown]
  - Hypochromic anaemia [Not Recovered/Not Resolved]
